FAERS Safety Report 5701046-3 (Version None)
Quarter: 2008Q2

REPORT INFORMATION
  Report Type: 
  Country: None (occurrence: None)
  Receive Date: 20080410
  Receipt Date: 20080328
  Transmission Date: 20081010
  Serious: Yes (Disabling)
  Sender: FDA-Public Use
  Company Number: DE-WYE-H03502808

PATIENT
  Sex: Male

DRUGS (3)
  1. CORDAREX [Suspect]
     Indication: ATRIAL FIBRILLATION
     Route: 048
     Dates: start: 20080110, end: 20080119
  2. CORDAREX [Suspect]
     Route: 048
     Dates: start: 20080120
  3. ATACAND [Concomitant]
     Indication: HYPERTENSION
     Dosage: 8 MG/FREQUENCY NOT PROVIDED
     Route: 048
     Dates: start: 20071022

REACTIONS (1)
  - FLATULENCE [None]
